FAERS Safety Report 24700547 (Version 2)
Quarter: 2024Q4

REPORT INFORMATION
  Report Type: Spontaneous
  Country: US (occurrence: US)
  Receive Date: 20241205
  Receipt Date: 20241225
  Transmission Date: 20250114
  Serious: Yes (Other)
  Sender: NOVARTIS
  Company Number: US-002147023-NVSC2024US230659

PATIENT
  Age: 71 Year
  Sex: Female
  Weight: 230 kg

DRUGS (14)
  1. COSENTYX [Suspect]
     Active Substance: SECUKINUMAB
     Indication: Psoriasis
     Dosage: 300 MG, QW (FOR 5 WEEKS, PEN INJECTOR)
     Route: 058
     Dates: start: 20220307
  2. COSENTYX [Suspect]
     Active Substance: SECUKINUMAB
     Dosage: 300 MG, Q4W
     Route: 058
     Dates: start: 20220316, end: 20240915
  3. COSENTYX [Suspect]
     Active Substance: SECUKINUMAB
     Dosage: 300 MG, Q4W (TWO SYRINGES, PEN INJECTOR)
     Route: 058
     Dates: start: 20230626
  4. BETAMETHASONE VALERATE [Concomitant]
     Active Substance: BETAMETHASONE VALERATE
     Indication: Product used for unknown indication
     Dosage: UNK, BID (TOPICAL, APPLY CREAM TO THICKENED AREA ON ARMS AND LEGS BID. DO NOT APPLY TO FACE)
     Route: 050
     Dates: start: 20211221
  5. HYDROCORTISONE [Concomitant]
     Active Substance: HYDROCORTISONE
     Indication: Product used for unknown indication
     Dosage: UNK, BID (TOPICAL, MIX WITH KETOCONAZOLE 2% CREAM AN APPLY TO THE FACE BID)
     Route: 050
     Dates: start: 20230626
  6. HYDROCORTISONE [Concomitant]
     Active Substance: HYDROCORTISONE
     Indication: Product used for unknown indication
     Dosage: UNK, BID (TOPICAL, APPLY BID TO FACE)
     Route: 050
     Dates: start: 20220927
  7. KETOCONAZOLE [Concomitant]
     Active Substance: KETOCONAZOLE
     Indication: Product used for unknown indication
     Dosage: UNK, BID (TOPICAL, MIX WITH HYDROCORTISONE 2.5% CREAM AND APPLY TO THE FACE BID)
     Route: 050
     Dates: start: 20230626
  8. KETOCONAZOLE [Concomitant]
     Active Substance: KETOCONAZOLE
     Indication: Product used for unknown indication
     Dosage: UNK, QOD (TOPICAL, WASH SCALP QOD. LET SIT 10 MIN THEN RINSE OUT)
     Route: 050
     Dates: start: 20211221
  9. MOMETASONE [Concomitant]
     Active Substance: MOMETASONE
     Indication: Product used for unknown indication
     Dosage: UNK, QD (TOPICAL, APPLY 5-6 DROPS QD TO SCALP BID))
     Route: 050
     Dates: start: 20211221
  10. TRIAMCINOLONE ACETONIDE [Concomitant]
     Active Substance: TRIAMCINOLONE ACETONIDE
     Indication: Product used for unknown indication
     Dosage: 0.1 %, BID (TOPICAL, APPLY BID TO AFFECTED AREA ON BODY. DO NOT APPLY TO FACE)
     Route: 050
     Dates: start: 20220222
  11. ALBUTEROL SULFATE [Concomitant]
     Active Substance: ALBUTEROL SULFATE
     Indication: Product used for unknown indication
     Dosage: UNK
     Route: 065
  12. HYDROXYZINE HYDROCHLORIDE [Concomitant]
     Active Substance: HYDROXYZINE HYDROCHLORIDE
     Indication: Pruritus
     Dosage: 25 MG, QHS (TAKE 1 PILL QHS PRN ITCHING, AT BED TIME)
     Route: 048
     Dates: start: 20220222
  13. LISINOPRIL [Concomitant]
     Active Substance: LISINOPRIL
     Indication: Product used for unknown indication
     Dosage: UNK
     Route: 048
  14. METFORMIN [Concomitant]
     Active Substance: METFORMIN HYDROCHLORIDE
     Indication: Product used for unknown indication
     Dosage: UNK
     Route: 048

REACTIONS (1)
  - Liver injury [Recovering/Resolving]

NARRATIVE: CASE EVENT DATE: 20241121
